FAERS Safety Report 20727321 (Version 1)
Quarter: 2022Q2

REPORT INFORMATION
  Report Type: Spontaneous
  Country: US (occurrence: US)
  Receive Date: 20220419
  Receipt Date: 20220419
  Transmission Date: 20220720
  Serious: No
  Sender: FDA-Public Use
  Company Number: US-JNJFOC-20220408403

PATIENT
  Sex: Male

DRUGS (1)
  1. MENS ROGAINE EXTRA STRENGTH [Suspect]
     Active Substance: MINOXIDIL
     Indication: Alopecia
     Dosage: DOSE: FOLLOW DIRECTION - DID NOT MEASURE - MAYBE A LITTLE MORE THAN 1/2 CAP TWICE A DAY
     Route: 061
     Dates: start: 20220222

REACTIONS (4)
  - Application site erythema [Recovered/Resolved]
  - Application site dryness [Recovered/Resolved]
  - Alopecia [Recovered/Resolved]
  - Overdose [Unknown]

NARRATIVE: CASE EVENT DATE: 20220222
